FAERS Safety Report 6917895-X (Version None)
Quarter: 2010Q3

REPORT INFORMATION
  Report Type: 
  Country: None (occurrence: None)
  Receive Date: 20100810
  Receipt Date: 20090713
  Transmission Date: 20110219
  Serious: No
  Sender: FDA-Public Use
  Company Number: US-PFIZER INC-2009220990

PATIENT
  Sex: Female

DRUGS (2)
  1. TOVIAZ [Suspect]
     Indication: HYPERTONIC BLADDER
     Dosage: 4 MG, UNK
  2. DETROL LA [Suspect]
     Indication: HYPERTONIC BLADDER

REACTIONS (2)
  - ADVERSE DRUG REACTION [None]
  - RESTLESSNESS [None]
